FAERS Safety Report 6178003-9 (Version None)
Quarter: 2009Q2

REPORT INFORMATION
  Report Type: 
  Country: None (occurrence: None)
  Receive Date: 20090504
  Receipt Date: 20090423
  Transmission Date: 20091009
  Serious: Yes (Other)
  Sender: FDA-Public Use
  Company Number: US-BAYER-200911305BCC

PATIENT
  Age: 82 Year
  Sex: Female
  Weight: 69 kg

DRUGS (10)
  1. ORIGINAL ALKA SELTZER ORIGINAL EFFERVESCENT TABLETS [Suspect]
     Indication: DYSPEPSIA
     Dates: start: 20090417
  2. SPIRIVA [Concomitant]
  3. ADVAIR HFA [Concomitant]
  4. ASTELIN [Concomitant]
  5. ALLEGRA [Concomitant]
  6. SINGULAIR [Concomitant]
  7. CENTRUM SILVER [Concomitant]
  8. CALCIUM PLUS VITAMIN D [Concomitant]
  9. ASPIRIN [Concomitant]
  10. VENTOLIN [Concomitant]
     Route: 055

REACTIONS (3)
  - CHILLS [None]
  - LOSS OF CONSCIOUSNESS [None]
  - SYNCOPE [None]
